FAERS Safety Report 9791895 (Version 1)
Quarter: 2014Q1

REPORT INFORMATION
  Report Type: Spontaneous
  Country: US (occurrence: US)
  Receive Date: 20140102
  Receipt Date: 20140102
  Transmission Date: 20141002
  Serious: No
  Sender: FDA-Public Use
  Company Number: US-PFIZER INC-2013370897

PATIENT
  Age: 13 Year
  Sex: Male
  Weight: 40.8 kg

DRUGS (2)
  1. GENOTROPIN [Suspect]
     Indication: GROWTH HORMONE DEFICIENCY
     Dosage: 1.4 MG, DAILY
     Route: 058
     Dates: start: 201308, end: 201312
  2. GENOTROPIN [Suspect]
     Indication: DWARFISM

REACTIONS (3)
  - Malaise [Not Recovered/Not Resolved]
  - Pain [Not Recovered/Not Resolved]
  - Influenza [Not Recovered/Not Resolved]
